FAERS Safety Report 8206884-3 (Version None)
Quarter: 2012Q1

REPORT INFORMATION
  Report Type: 
  Country: None (occurrence: None)
  Receive Date: 20120308
  Receipt Date: 20120228
  Transmission Date: 20120608
  Serious: Yes (Other)
  Sender: FDA-Public Use
  Company Number: 2012031471

PATIENT
  Sex: Female

DRUGS (1)
  1. PRIVIGEN [Suspect]
     Route: 042

REACTIONS (2)
  - PAIN [None]
  - EYE HAEMORRHAGE [None]
